FAERS Safety Report 5084043-3 (Version None)
Quarter: 2006Q3

REPORT INFORMATION
  Report Type: 
  Country: None (occurrence: None)
  Receive Date: 20060819
  Receipt Date: 20040525
  Transmission Date: 20061208
  Serious: Yes (Death, Life-Threatening, Hospitalization)
  Sender: FDA-Public Use
  Company Number: FR-BOEHRINGER INGELHEIM PHARMACEUTICALS, INC.-2004-FF-00335FF

PATIENT
  Sex: Male
  Weight: 75 kg

DRUGS (4)
  1. VIRAMUNE [Suspect]
     Indication: HIV INFECTION
     Route: 048
     Dates: start: 20040404, end: 20040418
  2. VIRAMUNE [Suspect]
     Route: 048
     Dates: start: 20040419, end: 20040501
  3. VIDEX [Concomitant]
     Indication: HIV INFECTION
     Route: 048
     Dates: start: 20030515, end: 20040501
  4. EPIVIR [Concomitant]
     Indication: HIV INFECTION
     Route: 048
     Dates: start: 20030515, end: 20040501

REACTIONS (5)
  - CARDIOVASCULAR DISORDER [None]
  - CONJUNCTIVITIS [None]
  - GENERAL PHYSICAL HEALTH DETERIORATION [None]
  - TONSILLITIS [None]
  - TOXIC EPIDERMAL NECROLYSIS [None]
